FAERS Safety Report 9608650 (Version 1)
Quarter: 2013Q4

REPORT INFORMATION
  Report Type: Spontaneous
  Country: GB (occurrence: None)
  Receive Date: 20131007
  Receipt Date: 20131007
  Transmission Date: 20140711
  Serious: Yes (Disabling, Other)
  Sender: FDA-Public Use
  Company Number: AUR-APL-2013-08009

PATIENT
  Age: 41 Year
  Sex: Female
  Weight: 95 kg

DRUGS (1)
  1. SERTRALINE (SERTRALINE) [Suspect]
     Indication: DEPRESSION
     Route: 048

REACTIONS (9)
  - Confusional state [None]
  - Dehydration [None]
  - Diarrhoea [None]
  - Dizziness [None]
  - Malaise [None]
  - Nausea [None]
  - Product substitution issue [None]
  - Activities of daily living impaired [None]
  - Suicidal ideation [None]
